FAERS Safety Report 19107472 (Version 1)
Quarter: 2021Q2

REPORT INFORMATION
  Report Type: Spontaneous
  Country: US (occurrence: US)
  Receive Date: 20210408
  Receipt Date: 20210408
  Transmission Date: 20210717
  Serious: No
  Sender: FDA-Public Use
  Company Number: None

PATIENT
  Age: 70 Year
  Sex: Male

DRUGS (1)
  1. OLODATEROL/TIOTROPIUM (OLODATEROL 2.5MCG/TIOTROPIUM 2.5MCG/ACTUAT INHL [Suspect]
     Active Substance: OLODATEROL HYDROCHLORIDE\TIOTROPIUM BROMIDE MONOHYDRATE
     Indication: CHRONIC OBSTRUCTIVE PULMONARY DISEASE
     Dosage: ?          OTHER ROUTE:INHALE?
     Route: 055
     Dates: start: 20201204, end: 20210318

REACTIONS (4)
  - Pruritus [None]
  - Urticaria [None]
  - Type IV hypersensitivity reaction [None]
  - Respiratory disorder [None]

NARRATIVE: CASE EVENT DATE: 20210318
